FAERS Safety Report 13692601 (Version 1)
Quarter: 2017Q2

REPORT INFORMATION
  Report Type: Spontaneous
  Country: US (occurrence: US)
  Receive Date: 20170627
  Receipt Date: 20170627
  Transmission Date: 20170830
  Serious: No
  Sender: FDA-Public Use
  Company Number: US-PFIZER INC-2017271789

PATIENT
  Sex: Male

DRUGS (1)
  1. XELJANZ XR [Suspect]
     Active Substance: TOFACITINIB CITRATE
     Dosage: 11 MG, DAILY

REACTIONS (13)
  - Tendon pain [Unknown]
  - Trigger finger [Unknown]
  - Rheumatoid factor positive [Unknown]
  - White blood cell count increased [Unknown]
  - Platelet count increased [Unknown]
  - Anti-cyclic citrullinated peptide antibody positive [Unknown]
  - Joint effusion [Unknown]
  - C-reactive protein increased [Unknown]
  - Arthralgia [Unknown]
  - Back pain [Unknown]
  - Neutrophil count increased [Unknown]
  - Blood glucose abnormal [Unknown]
  - Red blood cell sedimentation rate increased [Unknown]
